FAERS Safety Report 7274720-8 (Version None)
Quarter: 2011Q1

REPORT INFORMATION
  Report Type: 
  Country: None (occurrence: None)
  Receive Date: 20110204
  Receipt Date: 20110201
  Transmission Date: 20110831
  Serious: No
  Sender: FDA-Public Use
  Company Number: US-JNJFOC-20110201086

PATIENT
  Sex: Male
  Weight: 104.33 kg

DRUGS (4)
  1. HYTRIN [Concomitant]
     Indication: PROSTATIC DISORDER
     Route: 048
  2. FENTANYL-100 [Suspect]
     Indication: INTERVERTEBRAL DISC PROTRUSION
     Route: 062
  3. CYMBALTA [Concomitant]
     Indication: DEPRESSION
     Route: 048
  4. FENTANYL-100 [Suspect]
     Indication: NEURALGIA
     Route: 062

REACTIONS (4)
  - HEADACHE [None]
  - WRONG TECHNIQUE IN DRUG USAGE PROCESS [None]
  - INADEQUATE ANALGESIA [None]
  - INCORRECT DRUG ADMINISTRATION DURATION [None]
